FAERS Safety Report 14238279 (Version 2)
Quarter: 2017Q4

REPORT INFORMATION
  Report Type: Spontaneous
  Country: US (occurrence: US)
  Receive Date: 20171130
  Receipt Date: 20171204
  Transmission Date: 20180321
  Serious: Yes (Other)
  Sender: FDA-Public Use
  Company Number: US-PFIZER INC-2017505359

PATIENT
  Age: 66 Year
  Sex: Female
  Weight: 74.84 kg

DRUGS (5)
  1. ATROPINE SULFATE/DIPHENOXYLATE HYDROCHLORIDE [Suspect]
     Active Substance: ATROPINE SULFATE\DIPHENOXYLATE HYDROCHLORIDE
     Indication: DIARRHOEA
     Dosage: 1 DF, 4X/DAY
     Route: 048
  2. LISINOPRIL. [Concomitant]
     Active Substance: LISINOPRIL
     Indication: HYPERTENSION
     Dosage: 20 MG, 1X/DAY
  3. PANTOPRAZOLE [Concomitant]
     Active Substance: PANTOPRAZOLE
     Indication: GASTROOESOPHAGEAL REFLUX DISEASE
     Dosage: 40 MG, 1X/DAY
  4. ALEVE [Concomitant]
     Active Substance: NAPROXEN SODIUM
     Dosage: UNK
  5. LEVOTHYROXINE SODIUM. [Concomitant]
     Active Substance: LEVOTHYROXINE SODIUM
     Indication: HYPOTHYROIDISM
     Dosage: 0.150 UG, 1X/DAY

REACTIONS (12)
  - Drug effect incomplete [None]
  - Oesophageal spasm [Not Recovered/Not Resolved]
  - Product use issue [Unknown]
  - Somnolence [Not Recovered/Not Resolved]
  - Intentional product misuse [Unknown]
  - Polyp [Unknown]
  - Anal incontinence [None]
  - Unevaluable event [None]
  - Irritable bowel syndrome [None]
  - Muscle twitching [Unknown]
  - Weight decreased [Unknown]
  - Product physical issue [None]
